FAERS Safety Report 8309443-7 (Version None)
Quarter: 2012Q2

REPORT INFORMATION
  Report Type: 
  Country: None (occurrence: None)
  Receive Date: 20120420
  Receipt Date: 20120405
  Transmission Date: 20120825
  Serious: Yes (Other)
  Sender: FDA-Public Use
  Company Number: AUR-APL-2012-01796

PATIENT
  Age: 60 Year
  Sex: Female
  Weight: 95.24 kg

DRUGS (8)
  1. CADUET [Suspect]
     Indication: BLOOD CHOLESTEROL INCREASED
     Dosage: AMLODIPINE BESILATE
     Dates: end: 20110101
  2. TOLTERODINE TARTRATE (TOLTERODINE L-TARTRATE) [Suspect]
     Indication: BLADDER DISORDER
     Dates: end: 20110101
  3. LIPITOR [Suspect]
     Indication: BLOOD CHOLESTEROL INCREASED
     Dosage: (40 MG), ORAL
     Route: 048
     Dates: end: 20110101
  4. DETROL LA [Suspect]
     Indication: BLADDER DISORDER
     Dosage: (4 MG), ORAL
     Route: 048
     Dates: end: 20110101
  5. AMLODIPINE [Suspect]
     Indication: HYPERTENSION
     Dates: end: 20110101
  6. NORVASC [Suspect]
     Indication: HYPERTENSION
     Dosage: ORAL
     Route: 048
     Dates: end: 20110101
  7. LISINOPRIL [Suspect]
     Indication: HYPERTENSION
     Dosage: (20 MG, 1 D)
     Dates: start: 20110101
  8. SYNTHROID [Concomitant]

REACTIONS (3)
  - DRUG INEFFECTIVE [None]
  - HEART RATE IRREGULAR [None]
  - BLOOD PRESSURE INCREASED [None]
